FAERS Safety Report 12271633 (Version 5)
Quarter: 2016Q3

REPORT INFORMATION
  Report Type: Spontaneous
  Country: IT (occurrence: IT)
  Receive Date: 20160415
  Receipt Date: 20160708
  Transmission Date: 20161109
  Serious: Yes (Other)
  Sender: FDA-Public Use
  Company Number: IT-TEVA-650555ACC

PATIENT
  Age: 26 Year
  Sex: Female

DRUGS (1)
  1. CIPROFLOXACINA PHARMACARE [Suspect]
     Active Substance: CIPROFLOXACIN
     Indication: CYSTITIS
     Dosage: 500 MILLIGRAM DAILY;
     Dates: start: 20160203, end: 20160204

REACTIONS (5)
  - Arthralgia [Recovering/Resolving]
  - Viral infection [Unknown]
  - Muscle tightness [Not Recovered/Not Resolved]
  - Pruritus generalised [Unknown]
  - Rash generalised [Unknown]

NARRATIVE: CASE EVENT DATE: 20160203
